FAERS Safety Report 8104381-7 (Version None)
Quarter: 2012Q1

REPORT INFORMATION
  Report Type: 
  Country: None (occurrence: None)
  Receive Date: 20120130
  Receipt Date: 20120123
  Transmission Date: 20120608
  Serious: No
  Sender: FDA-Public Use
  Company Number: US-B.I. PHARMACEUTICALS,INC./RIDGEFIELD-2012-BP-01353BP

PATIENT
  Age: 79 Year
  Sex: Male

DRUGS (8)
  1. PRADAXA [Suspect]
     Indication: ATRIAL FIBRILLATION
     Dosage: 300 MG
     Route: 048
     Dates: start: 20120120
  2. ALIEVE [Concomitant]
     Indication: ARTHRITIS
     Dates: start: 20120121
  3. LISINOPRIL [Concomitant]
     Indication: HYPERTENSION
  4. GLYBURIDE [Concomitant]
     Indication: DIABETES MELLITUS
  5. DILTIAZEM HCL [Concomitant]
     Indication: CARDIAC DISORDER
  6. DIGOXIN [Concomitant]
     Indication: ATRIAL FIBRILLATION
  7. ARICEPT [Concomitant]
     Indication: MEMORY IMPAIRMENT
  8. BACTRIM [Concomitant]
     Indication: PROPHYLAXIS

REACTIONS (1)
  - CHROMATURIA [None]
